FAERS Safety Report 4870710-0 (Version None)
Quarter: 2006Q1

REPORT INFORMATION
  Report Type: 
  Country: None (occurrence: None)
  Receive Date: 20060103
  Receipt Date: 20051226
  Transmission Date: 20060701
  Serious: Yes (Death)
  Sender: FDA-Public Use
  Company Number: JP-GLAXOSMITHKLINE-B0404935A

PATIENT
  Age: 39 Year
  Sex: Female

DRUGS (7)
  1. HEPSERA [Suspect]
     Indication: HEPATIC CIRRHOSIS
     Dosage: 10MG PER DAY
     Route: 048
     Dates: start: 20040612, end: 20041007
  2. ZEFIX [Suspect]
     Indication: HEPATIC CIRRHOSIS
     Dosage: 100MG PER DAY
     Route: 048
     Dates: start: 20000101, end: 20030201
  3. ZEFIX [Suspect]
     Dosage: 100MG PER DAY
     Route: 048
     Dates: start: 20040401, end: 20041007
  4. DIFLUCAN [Concomitant]
     Route: 048
  5. MONILAC [Concomitant]
     Route: 048
  6. ALLOID G [Concomitant]
     Route: 048
  7. FLORID [Concomitant]
     Route: 048

REACTIONS (1)
  - DEATH [None]
